FAERS Safety Report 17734142 (Version 4)
Quarter: 2022Q1

REPORT INFORMATION
  Report Type: Spontaneous
  Country: US (occurrence: US)
  Receive Date: 20200501
  Receipt Date: 20220104
  Transmission Date: 20220423
  Serious: No
  Sender: FDA-Public Use
  Company Number: US-PFIZER INC-2020160468

PATIENT
  Age: 43 Year
  Sex: Female

DRUGS (3)
  1. LYRICA [Suspect]
     Active Substance: PREGABALIN
     Dosage: 50 MG, 3X/DAY (50 MG STRENGTH)
     Route: 048
  2. LYRICA [Suspect]
     Active Substance: PREGABALIN
     Dosage: 150 MG, 1X/DAY BEFORE BED (150 MG STRENGTH)
     Route: 048
  3. LYRICA [Suspect]
     Active Substance: PREGABALIN
     Dosage: 150 MG, 1X/DAY (TAKE 1 CAPSULE BY MOUTH EVERY NIGHT)
     Route: 048

REACTIONS (1)
  - Pain [Unknown]
